FAERS Safety Report 11451710 (Version 1)
Quarter: 2015Q3

REPORT INFORMATION
  Report Type: Spontaneous
  Country: US (occurrence: None)
  Receive Date: 20150902
  Receipt Date: 20150902
  Transmission Date: 20151125
  Serious: Yes (Hospitalization)
  Sender: FDA-Public Use
  Company Number: None

PATIENT
  Age: 56 Year
  Sex: Female
  Weight: 73.94 kg

DRUGS (11)
  1. DOCUSATE SODIUM. [Concomitant]
     Active Substance: DOCUSATE SODIUM
  2. ALPRAZOLAM. [Concomitant]
     Active Substance: ALPRAZOLAM
  3. CHLORZOXAZONE. [Concomitant]
     Active Substance: CHLORZOXAZONE
  4. LEVOTHYROXINE. [Concomitant]
     Active Substance: LEVOTHYROXINE
  5. METOPROLOL [Concomitant]
     Active Substance: METOPROLOL
  6. MELATONIN [Concomitant]
     Active Substance: MELATONIN
  7. IBUPROFEN. [Concomitant]
     Active Substance: IBUPROFEN
  8. CHLOROPHENIRAMINE MALEATE [Concomitant]
  9. ESCITALOPRAM [Suspect]
     Active Substance: ESCITALOPRAM OXALATE
     Indication: ANXIETY
     Route: 048
  10. ESCITALOPRAM [Suspect]
     Active Substance: ESCITALOPRAM OXALATE
     Indication: DEPRESSION
     Route: 048
  11. NASOCORT [Concomitant]
     Active Substance: BUDESONIDE

REACTIONS (6)
  - Chest pain [None]
  - Blood potassium decreased [None]
  - Chest discomfort [None]
  - Arrhythmia [None]
  - Hypertension [None]
  - Blood glucose decreased [None]

NARRATIVE: CASE EVENT DATE: 20150826
